FAERS Safety Report 15274998 (Version 2)
Quarter: 2018Q3

REPORT INFORMATION
  Report Type: Spontaneous
  Country: US (occurrence: US)
  Receive Date: 20180814
  Receipt Date: 20180830
  Transmission Date: 20181010
  Serious: No
  Sender: FDA-Public Use
  Company Number: US-PFIZER INC-2018118433

PATIENT
  Age: 10 Year
  Sex: Male

DRUGS (2)
  1. GENOTROPIN [Suspect]
     Active Substance: SOMATROPIN
     Indication: GROWTH HORMONE DEFICIENCY
     Dosage: 1 MG, ONCE DAILY IN STOMACH, THIGH OR BUTTOCKS
     Route: 058
     Dates: start: 20180228
  2. GENOTROPIN [Suspect]
     Active Substance: SOMATROPIN
     Dosage: 1 MG, ONCE DAILY IN STOMACH, THIGH OR BUTTOCKS
     Route: 058
     Dates: start: 20180228

REACTIONS (5)
  - Thyroxine free increased [Unknown]
  - Wrong technique in device usage process [Recovered/Resolved]
  - Blood thyroid stimulating hormone decreased [Unknown]
  - Incorrect dose administered [Recovered/Resolved]
  - Heart rate increased [Unknown]

NARRATIVE: CASE EVENT DATE: 20180328
